FAERS Safety Report 9029164 (Version 2)
Quarter: 2013Q1

REPORT INFORMATION
  Report Type: Report from Study
  Country: CA (occurrence: CA)
  Receive Date: 20130125
  Receipt Date: 20130221
  Transmission Date: 20140127
  Serious: Yes (Hospitalization)
  Sender: FDA-Public Use
  Company Number: CA-JNJFOC-20130108733

PATIENT
  Age: 58 Year
  Sex: Female
  Weight: 70.31 kg

DRUGS (1)
  1. REMICADE [Suspect]
     Indication: CROHN^S DISEASE
     Route: 042
     Dates: start: 20120127

REACTIONS (4)
  - Colostomy [Unknown]
  - Muscle spasms [Unknown]
  - Gastrointestinal stoma complication [Recovering/Resolving]
  - Pain [Not Recovered/Not Resolved]
